FAERS Safety Report 23722003 (Version 1)
Quarter: 2024Q2

REPORT INFORMATION
  Report Type: Spontaneous
  Country: US (occurrence: None)
  Receive Date: 20240408
  Receipt Date: 20240408
  Transmission Date: 20240716
  Serious: Yes (Hospitalization)
  Sender: FDA-Public Use
  Company Number: None

PATIENT
  Sex: Female

DRUGS (2)
  1. CAPECITABINE [Suspect]
     Active Substance: CAPECITABINE
     Indication: Breast cancer female
     Dosage: FREQUENCY : TWICE A DAY;?
     Route: 048
     Dates: start: 202403
  2. NERLYNX [Concomitant]
     Active Substance: NERATINIB

REACTIONS (6)
  - Diarrhoea [None]
  - Headache [None]
  - Myalgia [None]
  - Arthralgia [None]
  - Dyspepsia [None]
  - Loss of consciousness [None]
